FAERS Safety Report 4463790-8 (Version None)
Quarter: 2004Q4

REPORT INFORMATION
  Report Type: 
  Country: None (occurrence: None)
  Receive Date: 20041001
  Receipt Date: 20040928
  Transmission Date: 20050328
  Serious: Yes (Death)
  Sender: FDA-Public Use
  Company Number: BE-JNJFOC-20040909777

PATIENT
  Age: 44 Year
  Sex: Female

DRUGS (6)
  1. PROPULSID [Suspect]
     Route: 049
  2. PROPULSID [Suspect]
     Route: 049
  3. PROPULSID [Suspect]
     Route: 049
  4. PROPULSID [Suspect]
     Route: 049
  5. PROPULSID [Suspect]
     Indication: METASTASES TO STOMACH
     Route: 049
  6. PROPULSID [Suspect]
     Indication: DIABETIC GASTROPARESIS
     Route: 049

REACTIONS (1)
  - MALIGNANT NEOPLASM PROGRESSION [None]
